FAERS Safety Report 5385810-9 (Version None)
Quarter: 2007Q3

REPORT INFORMATION
  Report Type: 
  Country: None (occurrence: None)
  Receive Date: 20070712
  Receipt Date: 20070703
  Transmission Date: 20080115
  Serious: Yes (Other)
  Sender: FDA-Public Use
  Company Number: GB-ELI_LILLY_AND_COMPANY-GB200707001110

PATIENT
  Age: 16 Year
  Sex: Female

DRUGS (4)
  1. OLANZAPINE [Suspect]
     Dosage: 5 MG, EACH MORNING
     Route: 065
  2. OLANZAPINE [Suspect]
     Dosage: 10 MG, EACH EVENING
     Route: 065
  3. CLOZAPINE [Concomitant]
     Dosage: UNK, UNKNOWN
     Route: 065
  4. VALPROATE SODIUM [Concomitant]
     Dosage: UNK, UNKNOWN
     Route: 065

REACTIONS (1)
  - HAEMOLYTIC ANAEMIA [None]
